FAERS Safety Report 7242659-X (Version None)
Quarter: 2011Q1

REPORT INFORMATION
  Report Type: 
  Country: None (occurrence: None)
  Receive Date: 20110125
  Receipt Date: 20110118
  Transmission Date: 20110831
  Serious: Yes (Life-Threatening, Hospitalization, Other)
  Sender: FDA-Public Use
  Company Number: JP-PFIZER INC-2010175986

PATIENT
  Age: 72 Year
  Sex: Female
  Weight: 53 kg

DRUGS (8)
  1. GABAPENTIN [Concomitant]
     Dosage: 400 MG, 2X/DAY
     Dates: start: 20100101, end: 20101104
  2. LYRICA [Suspect]
     Dosage: 75 MG, 2X/DAY
     Route: 048
     Dates: start: 20101104, end: 20101210
  3. RIZABEN [Concomitant]
     Dosage: 300 MG, 3X/DAY
     Dates: end: 20101210
  4. AMITRIPTYLINE [Concomitant]
     Dosage: 20 MG, 2X/DAY
     Dates: end: 20101210
  5. DEPAS [Concomitant]
     Dosage: 1 MG, 1X/DAY
     Dates: end: 20101210
  6. CELECOXIB [Concomitant]
     Dosage: 200 MG, 2X/DAY
     Dates: end: 20101210
  7. GOSHAJINKIGAN [Concomitant]
     Dosage: 7.5 G, 3X/DAY
     Dates: end: 20101210
  8. LUDIOMIL [Concomitant]
     Dosage: 10 MG, 1X/DAY
     Dates: end: 20101210

REACTIONS (2)
  - PULMONARY EMBOLISM [None]
  - HAEMOLYTIC ANAEMIA [None]
